FAERS Safety Report 4804768-1 (Version None)
Quarter: 2005Q4

REPORT INFORMATION
  Report Type: 
  Country: None (occurrence: None)
  Receive Date: 20051017
  Receipt Date: 20051005
  Transmission Date: 20060501
  Serious: Yes (Other)
  Sender: FDA-Public Use
  Company Number: 802#1#2005-00001

PATIENT
  Sex: Male

DRUGS (1)
  1. SUGIRAN (ALPROSTADIL (PAOD)) [Suspect]
     Indication: PERIPHERAL ISCHAEMIA
     Dosage: INTRAVENOUS (NOT OTHERWISE SPECIFIED)
     Route: 042
     Dates: start: 20050901, end: 20050901

REACTIONS (4)
  - HYPOCOAGULABLE STATE [None]
  - LEUKOPENIA [None]
  - PYREXIA [None]
  - THROMBOCYTOPENIA [None]
